FAERS Safety Report 9527488 (Version 3)
Quarter: 2013Q4

REPORT INFORMATION
  Report Type: Report from Study
  Country: US (occurrence: US)
  Receive Date: 20130917
  Receipt Date: 20131024
  Transmission Date: 20140711
  Serious: Yes (Other)
  Sender: FDA-Public Use
  Company Number: US-BRISTOL-MYERS SQUIBB COMPANY-19200088

PATIENT
  Age: 39 Year
  Sex: Male

DRUGS (5)
  1. DENENICOKIN [Suspect]
     Indication: MALIGNANT MELANOMA
     Route: 042
     Dates: start: 20130805, end: 20130809
  2. IPILIMUMAB [Suspect]
     Indication: MALIGNANT MELANOMA
     Dosage: 1DF:251.5
     Route: 042
     Dates: start: 20130805, end: 20130805
  3. ADVIL [Concomitant]
     Dates: start: 2008
  4. BENADRYL [Concomitant]
     Dates: start: 20130726
  5. CLARITIN [Concomitant]
     Dates: start: 20121221

REACTIONS (2)
  - Pyrexia [Recovered/Resolved]
  - Dehydration [Recovered/Resolved]
